FAERS Safety Report 8522818-6 (Version None)
Quarter: 2012Q3

REPORT INFORMATION
  Report Type: 
  Country: None (occurrence: None)
  Receive Date: 20120720
  Receipt Date: 20120709
  Transmission Date: 20120928
  Serious: Yes (Hospitalization, Other)
  Sender: FDA-Public Use
  Company Number: LU-AMGEN-LUXSP2012041513

PATIENT
  Age: 72 Year
  Sex: Male
  Weight: 75 kg

DRUGS (4)
  1. MEDROL [Concomitant]
     Dosage: AS NEEDED
  2. ENBREL [Suspect]
     Indication: PRODUCT USED FOR UNKNOWN INDICATION
     Dosage: 50 MG, WEEKLY
     Route: 058
     Dates: start: 20120401, end: 20120605
  3. VITAMIN D [Concomitant]
     Dosage: 100000 UNK, MONTHLY
     Route: 048
  4. ISONIAZID [Concomitant]
     Indication: TUBERCULIN TEST POSITIVE
     Dosage: 300 MG, UNK
     Route: 048
     Dates: start: 20120101

REACTIONS (2)
  - ACUTE RESPIRATORY FAILURE [None]
  - LUNG INFILTRATION [None]
